FAERS Safety Report 21494274 (Version 3)
Quarter: 2022Q4

REPORT INFORMATION
  Report Type: Report from Study
  Country: JP (occurrence: JP)
  Receive Date: 20221021
  Receipt Date: 20221114
  Transmission Date: 20230113
  Serious: Yes (Hospitalization)
  Sender: FDA-Public Use
  Company Number: JP-ONO-2022JP028066

PATIENT
  Age: 54 Year
  Sex: Male
  Weight: 65.7 kg

DRUGS (9)
  1. BMS-986310 [Suspect]
     Active Substance: BMS-986310
     Indication: Non-small cell lung cancer
     Dosage: 1ST DOSE: FROM 14-JUL-2022 TO 20-JUL-2022?2ND DOSE: FROM 19-AUG-2022 TO 13-OCT-2022 (DRUG INTERRUPTE
     Route: 048
     Dates: start: 20220714
  2. DOCETAXEL [Suspect]
     Active Substance: DOCETAXEL
     Indication: Non-small cell lung cancer
     Dosage: LAST DOSE OF 109.62 MG ON 14-JUL-2022
     Route: 041
     Dates: start: 20220714, end: 20220714
  3. DOCETAXEL [Suspect]
     Active Substance: DOCETAXEL
     Dosage: LAST DOSE OF 87.7 MG WAS ON 22-SEP-2022
     Route: 041
     Dates: start: 20220805, end: 20220922
  4. RAMUCIRUMAB [Suspect]
     Active Substance: RAMUCIRUMAB
     Indication: Non-small cell lung cancer
     Dosage: LAST DOSE ON 26-AUG-2022
     Route: 041
     Dates: start: 20220714, end: 20220826
  5. AZ [Concomitant]
     Indication: Prophylaxis
     Route: 002
     Dates: start: 20221021
  6. AZ [Concomitant]
     Route: 002
     Dates: start: 20220805, end: 20221020
  7. LANSOPRAZOLE [Concomitant]
     Active Substance: LANSOPRAZOLE
     Indication: Prophylaxis
     Route: 048
     Dates: start: 20220715
  8. PEGFILGRASTIM [Concomitant]
     Active Substance: PEGFILGRASTIM
     Indication: Prophylaxis
     Route: 058
     Dates: start: 20220715
  9. METOCLOPRAMIDE [Concomitant]
     Active Substance: METOCLOPRAMIDE
     Indication: Nausea
     Route: 048
     Dates: start: 20220913

REACTIONS (1)
  - Anaemia [Recovered/Resolved]

NARRATIVE: CASE EVENT DATE: 20221013
